FAERS Safety Report 23540296 (Version 1)
Quarter: 2024Q1

REPORT INFORMATION
  Report Type: Spontaneous
  Country: US (occurrence: US)
  Receive Date: 20240219
  Receipt Date: 20240219
  Transmission Date: 20240410
  Serious: No
  Sender: FDA-Public Use
  Company Number: US-Stemline Therapeutics, Inc.-2023ST004109

PATIENT
  Age: 83 Year
  Sex: Female

DRUGS (2)
  1. ORSERDU [Suspect]
     Active Substance: ELACESTRANT
     Indication: Product used for unknown indication
     Dosage: 86 MG FOUR TABS DAILY
     Route: 048
     Dates: start: 20230814
  2. ORSERDU [Suspect]
     Active Substance: ELACESTRANT
     Route: 048
     Dates: start: 20230814

REACTIONS (5)
  - Alopecia [Unknown]
  - Anaemia [Unknown]
  - Abdominal discomfort [Unknown]
  - Dyspnoea [Unknown]
  - Arthralgia [Unknown]
